FAERS Safety Report 4803937-4 (Version None)
Quarter: 2005Q3

REPORT INFORMATION
  Report Type: 
  Country: None (occurrence: None)
  Receive Date: 20050920
  Receipt Date: 20050706
  Transmission Date: 20060218
  Serious: No
  Sender: FDA-Public Use
  Company Number: US-YAMANOUCHI-YPA20050262

PATIENT
  Age: 69 Year
  Sex: Female
  Weight: 76.2043 kg

DRUGS (8)
  1. VESICARE [Suspect]
     Indication: MICTURITION URGENCY
     Dosage: 5 MG QD PO
     Route: 048
     Dates: start: 20050426, end: 20050507
  2. VESICARE [Suspect]
     Indication: POLLAKIURIA
     Dosage: 5 MG QD PO
     Route: 048
     Dates: start: 20050426, end: 20050507
  3. INDERAL LA [Concomitant]
  4. ASPIRIN [Concomitant]
  5. PREMARIN [Concomitant]
  6. GLUCOSAMINE [Concomitant]
  7. CITRACAL [Concomitant]
  8. CENTRUM SILVER [Concomitant]

REACTIONS (2)
  - CHEST DISCOMFORT [None]
  - HYPERTENSION [None]
